FAERS Safety Report 8271111-8 (Version None)
Quarter: 2012Q2

REPORT INFORMATION
  Report Type: 
  Country: None (occurrence: None)
  Receive Date: 20120410
  Receipt Date: 20120402
  Transmission Date: 20120825
  Serious: Yes (Other)
  Sender: FDA-Public Use
  Company Number: US-BAYER-2012-032686

PATIENT
  Age: 48 Year
  Sex: Female

DRUGS (16)
  1. YASMIN [Suspect]
     Indication: MENORRHAGIA
     Dosage: UNK
     Dates: start: 20081201
  2. SIMVASTATIN [Concomitant]
     Indication: HYPERLIPIDAEMIA
     Dosage: 20 MG, QD
     Route: 048
  3. RETIN-A [Concomitant]
  4. AYGESTIN [Concomitant]
     Indication: HAEMORRHAGE
     Dosage: 5 MG, QD
     Route: 048
  5. NAPROXEN [Concomitant]
     Dosage: 500 MG, 1 EVERY 12 HOURS
     Route: 048
  6. PULMICORT [Concomitant]
     Dosage: 2-6 SPRAYS AS NEEDED
     Route: 045
  7. ZYRTEC [Concomitant]
     Indication: MULTIPLE ALLERGIES
     Dosage: UNK UNK, QD
     Route: 048
  8. DARVOCET [Concomitant]
     Indication: PAIN
     Dosage: 100 MG, 1-2 EVERY 6 HOURS AS NEEDED
     Route: 048
  9. LUPRON DEPOT [Concomitant]
     Indication: ANAEMIA
  10. IRON [Concomitant]
     Indication: ANAEMIA
     Dosage: 1 TABLET BID
     Route: 048
  11. IRON [Concomitant]
     Dosage: UNK, BID
     Route: 042
  12. YAZ [Suspect]
     Indication: MENORRHAGIA
     Dosage: UNK
     Dates: start: 20081201
  13. MULTI-VITAMIN [Concomitant]
     Indication: SUPPLEMENTATION THERAPY
     Dosage: UNK UNK, QD
     Route: 048
  14. FLUOXETINE [Concomitant]
  15. CALCIUM CARBONATE [Concomitant]
     Indication: SUPPLEMENTATION THERAPY
     Dosage: UNK UNK, QD
     Route: 048
  16. VALTREX [Concomitant]
     Indication: HERPES VIRUS INFECTION
     Dosage: 500 MG, 1 TABLET TWICE DAILY 3DAYS AS NEEDED
     Route: 048

REACTIONS (2)
  - THROMBOPHLEBITIS SUPERFICIAL [None]
  - DEEP VEIN THROMBOSIS [None]
